FAERS Safety Report 17414153 (Version 2)
Quarter: 2020Q1

REPORT INFORMATION
  Report Type: Spontaneous
  Country: DE (occurrence: DE)
  Receive Date: 20200213
  Receipt Date: 20200219
  Transmission Date: 20200409
  Serious: Yes (Hospitalization, Other)
  Sender: FDA-Public Use
  Company Number: DE-ASTRAZENECA-2020SE20752

PATIENT
  Sex: Male

DRUGS (11)
  1. CRESTOR [Suspect]
     Active Substance: ROSUVASTATIN CALCIUM
     Indication: HYPERCHOLESTEROLAEMIA
     Route: 048
     Dates: start: 201803
  2. ALLOPURINOL. [Concomitant]
     Active Substance: ALLOPURINOL
  3. ANTRA MUPS [Concomitant]
     Active Substance: OMEPRAZOLE MAGNESIUM
  4. L-THYROX [Concomitant]
     Active Substance: LEVOTHYROXINE SODIUM
  5. IRBESARTAN. [Concomitant]
     Active Substance: IRBESARTAN
  6. JANUVIA [Concomitant]
     Active Substance: SITAGLIPTIN PHOSPHATE
     Indication: DIABETES MELLITUS
  7. NEBIVOLOL. [Concomitant]
     Active Substance: NEBIVOLOL
  8. ACETYLSALICYLIC ACID [Concomitant]
     Active Substance: ASPIRIN
     Dosage: 2.0DF UNKNOWN
  9. INSULIN LISPRO HUMALOG HIGH DOSAGE [Concomitant]
  10. CRESTOR [Suspect]
     Active Substance: ROSUVASTATIN CALCIUM
     Indication: HYPERCHOLESTEROLAEMIA
     Dosage: 10.0MG UNKNOWN
     Route: 048
     Dates: end: 202002
  11. INSULIN GLARGIN [Concomitant]
     Active Substance: INSULIN GLARGINE

REACTIONS (8)
  - Muscular weakness [Unknown]
  - Pain [Unknown]
  - Bleeding time prolonged [Unknown]
  - Musculoskeletal pain [Unknown]
  - Thyroid disorder [Unknown]
  - Paralysis [Unknown]
  - Blood creatine phosphokinase increased [Unknown]
  - Monoparesis [Unknown]
